FAERS Safety Report 15954911 (Version 1)
Quarter: 2019Q1

REPORT INFORMATION
  Report Type: Report from Study
  Country: None (occurrence: IT)
  Receive Date: 20190213
  Receipt Date: 20190213
  Transmission Date: 20190417
  Serious: Yes (Hospitalization)
  Sender: FDA-Public Use
  Company Number: IT-ABBVIE-19S-083-2662589-00

PATIENT
  Age: 76 Year
  Sex: Male

DRUGS (1)
  1. DUODOPA [Suspect]
     Active Substance: CARBIDOPA\LEVODOPA
     Indication: PARKINSON^S DISEASE
     Dosage: MD 7(+3), CR 3,2, ED 3
     Route: 050
     Dates: start: 20161026

REACTIONS (2)
  - Osteochondrosis [Unknown]
  - Arthroscopic surgery [Unknown]

NARRATIVE: CASE EVENT DATE: 20190126
